FAERS Safety Report 8140470-9 (Version None)
Quarter: 2012Q1

REPORT INFORMATION
  Report Type: 
  Country: None (occurrence: None)
  Receive Date: 20120216
  Receipt Date: 20120213
  Transmission Date: 20120608
  Serious: Yes (Other)
  Sender: FDA-Public Use
  Company Number: JP-PFIZER INC-2012038729

PATIENT

DRUGS (1)
  1. CORTRIL [Suspect]
     Indication: HYPOPITUITARISM
     Dosage: 30 MG/DAY
     Route: 048

REACTIONS (1)
  - APHAGIA [None]
